FAERS Safety Report 7599502-9 (Version None)
Quarter: 2011Q3

REPORT INFORMATION
  Report Type: 
  Country: None (occurrence: None)
  Receive Date: 20110711
  Receipt Date: 20110627
  Transmission Date: 20111222
  Serious: Yes (Hospitalization)
  Sender: FDA-Public Use
  Company Number: US-BAYER-201025795NA

PATIENT
  Age: 52 Year
  Sex: Female
  Weight: 101.3 kg

DRUGS (48)
  1. SORAFENIB (RAF KINASE INHIBITOR) [Suspect]
     Dosage: 400 MG, BID
     Route: 048
     Dates: start: 20100322, end: 20100404
  2. ATENOLOL [Concomitant]
     Indication: CARDIOVASCULAR DISORDER
     Route: 048
     Dates: start: 19980601
  3. BUPROPION HYDROCHLORIDE [Concomitant]
     Indication: DEPRESSION
     Route: 048
     Dates: start: 20090101
  4. FLUTICASONE PROPIONATE [Concomitant]
     Indication: ASTHMA
     Dosage: 1 PUFF(S), QD
     Route: 055
     Dates: start: 20090501
  5. PROCHLORPERAZINE MALEATE [Concomitant]
     Indication: PROPHYLAXIS
     Route: 048
     Dates: start: 20100101
  6. ZYRTEC [Concomitant]
     Indication: ANTIALLERGIC THERAPY
     Route: 048
     Dates: start: 20090501
  7. LEVEMIR [Concomitant]
     Indication: DIABETES MELLITUS
     Dosage: UNK
     Dates: start: 20110314
  8. ASPIRIN [Concomitant]
     Indication: PAIN
     Route: 048
     Dates: start: 20020301
  9. DRISDOL [Concomitant]
     Indication: OSTEOARTHRITIS
     Dates: start: 20080601
  10. LEXAPRO [Concomitant]
     Indication: DEPRESSION
     Route: 048
     Dates: start: 20080301
  11. LEVAQUIN [Concomitant]
     Indication: INFECTION PROPHYLAXIS
     Dosage: 500 MG TOTAL DAILY DOSE
     Dates: start: 20110225, end: 20110303
  12. DOCUSATE SODIUM [Concomitant]
     Indication: CONSTIPATION PROPHYLAXIS
     Route: 048
     Dates: start: 20011001
  13. METOCLOPRAMIDE [Concomitant]
     Indication: IMPAIRED GASTRIC EMPTYING
     Dosage: 30 MG, PRN
     Route: 048
     Dates: start: 20060601, end: 20110208
  14. NITROGLYCERIN [Concomitant]
     Indication: CARDIOVASCULAR DISORDER
     Route: 048
     Dates: start: 20060201
  15. PROTONIX [Concomitant]
     Indication: GASTROOESOPHAGEAL REFLUX DISEASE
     Route: 048
     Dates: start: 20051201
  16. SPIRONOLACTONE [Concomitant]
     Indication: CARDIOVASCULAR DISORDER
     Route: 048
     Dates: start: 20060601
  17. TEMAZEPAM [Concomitant]
     Indication: SLEEP DISORDER THERAPY
     Route: 048
     Dates: start: 20080301
  18. VITAMIN B-12 [Concomitant]
     Indication: VITAMIN SUPPLEMENTATION
     Dosage: 100 MCG/ML
     Route: 048
     Dates: start: 20071201
  19. SORAFENIB (RAF KINASE INHIBITOR) [Suspect]
     Dosage: 400 MG, QD
     Route: 048
     Dates: start: 20100422, end: 20100504
  20. SORAFENIB (RAF KINASE INHIBITOR) [Suspect]
     Dosage: 400 MG, QD
     Route: 048
     Dates: start: 20101209, end: 20110524
  21. INSULIN [Concomitant]
     Indication: DIABETES MELLITUS
     Route: 058
     Dates: start: 19950801
  22. LEVOTHYROXINE SODIUM [Concomitant]
     Indication: HYPOTHYROIDISM
     Route: 048
     Dates: start: 20020101
  23. LEVAQUIN [Concomitant]
     Indication: UPPER RESPIRATORY TRACT INFECTION
     Route: 048
     Dates: start: 20100215, end: 20100222
  24. CYCLOBENZAPRINE HYDROCHLORIDE [Concomitant]
     Indication: FIBROMYALGIA
     Route: 048
     Dates: start: 20011001
  25. FENTANYL [Concomitant]
     Indication: PAIN
     Dosage: X72 HOURS
     Route: 062
     Dates: start: 20021001
  26. FLONASE [Concomitant]
     Indication: ASTHMA
     Route: 045
     Dates: start: 20080501
  27. PATANOL [Concomitant]
     Indication: SEASONAL ALLERGY
     Dosage: 2 DROPS
     Route: 031
     Dates: start: 20080901
  28. LIDEX [Concomitant]
     Indication: RASH
     Route: 061
     Dates: start: 20070501
  29. SORAFENIB (RAF KINASE INHIBITOR) [Suspect]
     Dosage: 400 MG, BID
     Route: 048
     Dates: start: 20100504
  30. ALBUTEROL SULFATE AUTOHALER [Concomitant]
     Indication: ASTHMA
     Route: 055
     Dates: start: 19980801
  31. METAMUCIL-2 [Concomitant]
     Indication: CONSTIPATION PROPHYLAXIS
     Route: 048
     Dates: start: 19950101
  32. METHYLPREDNISOLONE [Concomitant]
     Indication: PAIN PROPHYLAXIS
     Route: 048
     Dates: start: 20091215
  33. MULTI-VITAMIN [Concomitant]
     Indication: VITAMIN SUPPLEMENTATION
     Dosage: 1 TABLET
     Route: 048
     Dates: start: 19890601
  34. CIPROFLOXACIN [Concomitant]
     Indication: CELLULITIS
     Dosage: UNK
     Dates: start: 20100407, end: 20100415
  35. DOXYCYCLINE [Concomitant]
     Dosage: UNK
     Dates: start: 20110326, end: 20110404
  36. ALPRAZOLAM [Concomitant]
     Indication: ANXIETY
     Dosage: 1.5 MG (DAILY DOSE), , ORAL
     Route: 048
     Dates: start: 20011001
  37. BUMETANIDE [Concomitant]
     Indication: RENAL FAILURE
     Route: 048
     Dates: start: 20060601
  38. IMDUR [Concomitant]
     Indication: HYPERTENSION
     Route: 048
     Dates: start: 20061201
  39. MORPHINE SULFATE [Concomitant]
     Indication: PAIN
     Route: 048
     Dates: start: 20021001
  40. POTASSIUM CHLORIDE [Concomitant]
     Indication: MINERAL SUPPLEMENTATION
     Route: 048
     Dates: start: 20091201
  41. ZITHROMAX [Concomitant]
     Indication: ANTIBIOTIC PROPHYLAXIS
     Route: 048
     Dates: start: 20071001
  42. SORAFENIB (RAF KINASE INHIBITOR) [Suspect]
     Indication: HEPATIC NEOPLASM MALIGNANT
     Dosage: 400 MG, BID
     Route: 048
     Dates: start: 20100301, end: 20100301
  43. FISH OIL [Concomitant]
     Indication: HYPERTRIGLYCERIDAEMIA
     Route: 048
     Dates: start: 20061001
  44. LANTUS [Concomitant]
     Indication: DIABETES MELLITUS
     Dosage: UNK
     Route: 058
     Dates: start: 20011001, end: 20110314
  45. NOVOLOG [Concomitant]
     Indication: DIABETES MELLITUS
     Route: 058
     Dates: start: 19950801
  46. MICONAZOLE NITRATE [Concomitant]
     Indication: RASH
     Route: 061
     Dates: start: 20070501
  47. ZOFRAN [Concomitant]
     Indication: PROPHYLAXIS
     Route: 048
     Dates: start: 20100101
  48. DOXYCYCLINE [Concomitant]
     Indication: CELLULITIS
     Dosage: UNK
     Dates: start: 20100407, end: 20100415

REACTIONS (4)
  - IMPAIRED GASTRIC EMPTYING [None]
  - CELLULITIS [None]
  - CHEST PAIN [None]
  - HYPERTENSION [None]
